FAERS Safety Report 8346370 (Version 2)
Quarter: 2013Q3

REPORT INFORMATION
  Report Type: Report from Study
  Country: MX (occurrence: MX)
  Receive Date: 20120120
  Receipt Date: 20130708
  Transmission Date: 20140515
  Serious: Yes (Other)
  Sender: FDA-Public Use
  Company Number: PHHY2012MX003909

PATIENT
  Age: 26 Year
  Sex: Male

DRUGS (1)
  1. STALEVO [Suspect]
     Indication: PARKINSON^S DISEASE
     Dosage: 2  TABLETS (150/37.5/200 MG) DAILY
     Route: 048
     Dates: start: 201001, end: 201103

REACTIONS (1)
  - Urinary tract obstruction [Recovered/Resolved]
